FAERS Safety Report 7947105-6 (Version None)
Quarter: 2011Q4

REPORT INFORMATION
  Report Type: 
  Country: None (occurrence: None)
  Receive Date: 20111129
  Receipt Date: 20111116
  Transmission Date: 20120403
  Serious: Yes (Life-Threatening, Hospitalization, Other)
  Sender: FDA-Public Use
  Company Number: JP-ROCHE-773167

PATIENT
  Sex: Female
  Weight: 48 kg

DRUGS (7)
  1. RABEPRAZOLE SODIUM [Concomitant]
     Route: 048
     Dates: start: 20110408
  2. CISPLATIN [Suspect]
     Indication: LUNG ADENOCARCINOMA METASTATIC
     Route: 041
     Dates: start: 20110121, end: 20110408
  3. GEMZAR [Suspect]
     Indication: LUNG ADENOCARCINOMA METASTATIC
     Route: 041
     Dates: start: 20110121, end: 20110121
  4. AVASTIN [Suspect]
     Indication: LUNG ADENOCARCINOMA METASTATIC
     Route: 041
     Dates: start: 20110121, end: 20110408
  5. GEMZAR [Suspect]
     Route: 041
     Dates: start: 20110218, end: 20110408
  6. LENDORMIN [Concomitant]
     Route: 048
     Dates: start: 20110217
  7. ZOMETA [Suspect]
     Indication: PRODUCT USED FOR UNKNOWN INDICATION
     Route: 041

REACTIONS (7)
  - INFECTIOUS PERITONITIS [None]
  - HYPONATRAEMIA [None]
  - HYPOCALCAEMIA [None]
  - DISSEMINATED INTRAVASCULAR COAGULATION [None]
  - ALANINE AMINOTRANSFERASE INCREASED [None]
  - GASTROINTESTINAL PERFORATION [None]
  - BONE MARROW FAILURE [None]
